FAERS Safety Report 21168267 (Version 2)
Quarter: 2023Q2

REPORT INFORMATION
  Report Type: Report from Study
  Country: IT (occurrence: IT)
  Receive Date: 20220803
  Receipt Date: 20230502
  Transmission Date: 20230722
  Serious: Yes (Hospitalization, Other)
  Sender: FDA-Public Use
  Company Number: IT-UCBSA-2022042644

PATIENT
  Sex: Female

DRUGS (2)
  1. NEUPRO [Suspect]
     Active Substance: ROTIGOTINE
     Indication: Product used for unknown indication
     Dosage: 2 MILLIGRAM, ONCE DAILY (QD)
  2. NEUPRO [Suspect]
     Active Substance: ROTIGOTINE
     Dosage: 4 MILLIGRAM, ONCE DAILY (QD)

REACTIONS (8)
  - Upper limb fracture [Unknown]
  - Wrist fracture [Unknown]
  - Fall [Unknown]
  - Gait disturbance [Unknown]
  - Feeling abnormal [Unknown]
  - Irritability [Unknown]
  - Nervousness [Unknown]
  - Bedridden [Unknown]

NARRATIVE: CASE EVENT DATE: 20220701
